FAERS Safety Report 11131336 (Version 1)
Quarter: 2015Q2

REPORT INFORMATION
  Report Type: Spontaneous
  Country: US (occurrence: None)
  Receive Date: 20150515
  Receipt Date: 20150515
  Transmission Date: 20150821
  Serious: No
  Sender: FDA-Public Use
  Company Number: AUR-APU-2015-02247

PATIENT
  Sex: Female

DRUGS (1)
  1. OLANZAPINE TABLETS 10MG (OLANZAPINE) TABLET, 10MG [Suspect]
     Active Substance: OLANZAPINE
     Indication: DYSPEPSIA

REACTIONS (4)
  - Product substitution issue [None]
  - Off label use [None]
  - Dyspepsia [None]
  - Insomnia [None]
